FAERS Safety Report 20390415 (Version 1)
Quarter: 2022Q1

REPORT INFORMATION
  Report Type: Spontaneous
  Country: US (occurrence: US)
  Receive Date: 20220128
  Receipt Date: 20220128
  Transmission Date: 20220424
  Serious: Yes (Hospitalization)
  Sender: FDA-Public Use
  Company Number: US-AVET LIFESCIENCES LTD-2022-AVET-000013

PATIENT
  Age: 68 Year
  Sex: Male

DRUGS (1)
  1. ACETAMINOPHEN [Suspect]
     Active Substance: ACETAMINOPHEN
     Indication: Pain
     Dosage: TO 2 PILLS A COUPLE TIMES A DAY

REACTIONS (8)
  - Metabolic acidosis [Recovering/Resolving]
  - Starvation ketoacidosis [Recovering/Resolving]
  - Hypernatraemia [Recovering/Resolving]
  - Acute kidney injury [Recovering/Resolving]
  - Toxicity to various agents [Recovering/Resolving]
  - Tachypnoea [Recovering/Resolving]
  - Kussmaul respiration [Recovering/Resolving]
  - Confusional state [Recovering/Resolving]
